FAERS Safety Report 14185367 (Version 1)
Quarter: 2017Q4

REPORT INFORMATION
  Report Type: Spontaneous
  Country: US (occurrence: US)
  Receive Date: 20171114
  Receipt Date: 20171114
  Transmission Date: 20180321
  Serious: No
  Sender: FDA-Public Use
  Company Number: US-TARO-2016TAR00823

PATIENT
  Age: 83 Year
  Sex: Female

DRUGS (1)
  1. MUPIROCIN OINTMENT USP 2% [Suspect]
     Active Substance: MUPIROCIN

REACTIONS (3)
  - Off label use [Unknown]
  - Incorrect route of drug administration [Unknown]
  - Epistaxis [Unknown]

NARRATIVE: CASE EVENT DATE: 20160925
